FAERS Safety Report 7564521-5 (Version None)
Quarter: 2011Q2

REPORT INFORMATION
  Report Type: 
  Country: None (occurrence: None)
  Receive Date: 20110622
  Receipt Date: 20100819
  Transmission Date: 20111010
  Serious: Yes (Other)
  Sender: FDA-Public Use
  Company Number: US-MYLANLABS-2010S1007574

PATIENT
  Age: 49 Year
  Sex: Male
  Weight: 66.68 kg

DRUGS (8)
  1. CLOZAPINE [Suspect]
     Indication: SCHIZOPHRENIA
     Route: 048
     Dates: start: 20100405, end: 20100501
  2. CLOZAPINE [Suspect]
     Route: 048
     Dates: start: 20100527
  3. DILANTIN [Concomitant]
     Route: 048
  4. THORAZINE /00011901/ [Concomitant]
     Dosage: 100MG QAM AND 500MG QPM
     Route: 048
  5. SYMMETREL [Concomitant]
     Route: 048
  6. TEGRETOL [Concomitant]
     Route: 048
  7. EFFEXOR [Concomitant]
     Route: 048
  8. BENADRYL [Concomitant]
     Route: 048

REACTIONS (2)
  - GRANULOCYTOPENIA [None]
  - LEUKOPENIA [None]
